FAERS Safety Report 9143213 (Version 1)
Quarter: 2013Q1

REPORT INFORMATION
  Report Type: Spontaneous
  Country: US (occurrence: US)
  Receive Date: 20130306
  Receipt Date: 20130306
  Transmission Date: 20140127
  Serious: No
  Sender: FDA-Public Use
  Company Number: US-ENDO PHARMACEUTICALS INC.-OPER20100215

PATIENT
  Age: 40 Year
  Sex: Female

DRUGS (3)
  1. OPANA ER [Suspect]
     Indication: PAIN
     Route: 048
     Dates: start: 20101127, end: 20101128
  2. OXYCONTIN [Concomitant]
     Indication: PAIN
     Route: 048
  3. LORATAB [Concomitant]
     Indication: BREAKTHROUGH PAIN
     Dosage: UNKNOWN
     Route: 048

REACTIONS (1)
  - Anaphylactoid reaction [Recovered/Resolved]
